FAERS Safety Report 9887843 (Version 1)
Quarter: 2014Q1

REPORT INFORMATION
  Report Type: Report from Study
  Country: AU (occurrence: AU)
  Receive Date: 20140211
  Receipt Date: 20140211
  Transmission Date: 20141002
  Serious: Yes (Hospitalization)
  Sender: FDA-Public Use
  Company Number: PHHY2014AU015804

PATIENT
  Sex: Male

DRUGS (2)
  1. SANDOSTATIN LAR [Suspect]
     Indication: CARCINOID SYNDROME
     Dosage: 40 MG, UNK
     Route: 030
  2. SANDOSTATIN LAR [Suspect]
     Dosage: UNK
     Route: 030

REACTIONS (1)
  - Urinary tract infection [Unknown]
